FAERS Safety Report 7834857-9 (Version None)
Quarter: 2011Q4

REPORT INFORMATION
  Report Type: 
  Country: None (occurrence: None)
  Receive Date: 20111020
  Receipt Date: 20110928
  Transmission Date: 20120403
  Serious: Yes (Other)
  Sender: FDA-Public Use
  Company Number: MSTR-NO-1109S-0240

PATIENT
  Age: 39 Year
  Sex: Female

DRUGS (1)
  1. METASTRON [Suspect]
     Indication: METASTATIC PAIN
     Dosage: 114 MBQ, SINGLE DOSE, INTRAVENOUS
     Route: 042
     Dates: start: 20110805, end: 20110805

REACTIONS (1)
  - PLATELET COUNT DECREASED [None]
